FAERS Safety Report 11090747 (Version 1)
Quarter: 2015Q2

REPORT INFORMATION
  Report Type: Spontaneous
  Country: US (occurrence: None)
  Receive Date: 20150504
  Receipt Date: 20150504
  Transmission Date: 20150821
  Serious: Yes (Other)
  Sender: FDA-Public Use
  Company Number: None

PATIENT
  Age: 51 Year
  Sex: Male
  Weight: 83.92 kg

DRUGS (6)
  1. ISOSORBIDE MN ER [Concomitant]
     Active Substance: ISOSORBIDE
  2. AZOR [Concomitant]
     Active Substance: AMLODIPINE BESYLATE\OLMESARTAN MEDOXOMIL
  3. PRAVASTATIN SODIUM. [Concomitant]
     Active Substance: PRAVASTATIN SODIUM
  4. CARVEDILOL. [Concomitant]
     Active Substance: CARVEDILOL
  5. ONDANSETRON. [Suspect]
     Active Substance: ONDANSETRON
     Indication: PRODUCT USED FOR UNKNOWN INDICATION
     Dosage: INTO A VEIN
     Dates: start: 20150417, end: 20150417
  6. CENTRUM SILVER FOR MEN [Concomitant]

REACTIONS (4)
  - Loss of employment [None]
  - Product taste abnormal [None]
  - Dyspnoea [None]
  - Alcohol test false positive [None]

NARRATIVE: CASE EVENT DATE: 20150417
